FAERS Safety Report 5460589-0 (Version None)
Quarter: 2007Q3

REPORT INFORMATION
  Report Type: 
  Country: None (occurrence: None)
  Receive Date: 20070919
  Receipt Date: 20070907
  Transmission Date: 20080115
  Serious: Yes (Other)
  Sender: FDA-Public Use
  Company Number: DE-PFIZER INC-2007071335

PATIENT
  Sex: Male
  Weight: 74.6 kg

DRUGS (3)
  1. LYRICA [Suspect]
     Indication: ANXIETY
     Dosage: DAILY DOSE:325MG
     Route: 048
  2. MIRTAZAPINE [Suspect]
     Indication: DEPRESSION
     Dosage: DAILY DOSE:45MG
     Route: 048
  3. MAGNESIUM SULFATE [Concomitant]
     Route: 048

REACTIONS (1)
  - TRANSAMINASES INCREASED [None]
